FAERS Safety Report 26206367 (Version 2)
Quarter: 2025Q4

REPORT INFORMATION
  Report Type: Spontaneous
  Country: US (occurrence: US)
  Receive Date: 20251229
  Receipt Date: 20251229
  Transmission Date: 20260118
  Serious: Yes (Hospitalization)
  Sender: ROCHE
  Company Number: US-ROCHE-10000463243

PATIENT
  Age: 21 Year
  Sex: Male

DRUGS (1)
  1. EVRYSDI [Suspect]
     Active Substance: RISDIPLAM
     Indication: Spinal muscular atrophy

REACTIONS (3)
  - Pneumonia [Recovering/Resolving]
  - Pneumothorax [Recovering/Resolving]
  - Tracheostomy [Recovering/Resolving]

NARRATIVE: CASE EVENT DATE: 20251101
